FAERS Safety Report 14148951 (Version 1)
Quarter: 2017Q4

REPORT INFORMATION
  Report Type: Spontaneous
  Country: IT (occurrence: IT)
  Receive Date: 20171101
  Receipt Date: 20171101
  Transmission Date: 20180321
  Serious: Yes (Life-Threatening)
  Sender: FDA-Public Use
  Company Number: IT-BAYER-2017-205253

PATIENT
  Age: 40 Year
  Sex: Female

DRUGS (4)
  1. TEICOPLANIN [Suspect]
     Active Substance: TEICOPLANIN
     Indication: PNEUMONIA STAPHYLOCOCCAL
     Dosage: DAILY DOSE 400 MG
     Route: 042
     Dates: start: 20030511, end: 20030603
  2. KCL [Concomitant]
     Active Substance: POTASSIUM CHLORIDE
  3. CIPROFLOXACIN. [Suspect]
     Active Substance: CIPROFLOXACIN
     Indication: PNEUMONIA STAPHYLOCOCCAL
     Dosage: DAILY DOSE 800 MG
     Route: 042
     Dates: start: 20030511, end: 20030603
  4. HUMATIN [Concomitant]
     Active Substance: PAROMOMYCIN SULFATE
     Indication: PNEUMONIA STAPHYLOCOCCAL
     Dosage: UNK
     Dates: start: 20030513, end: 20030603

REACTIONS (3)
  - Agranulocytosis [Recovered/Resolved]
  - Erythema [Recovered/Resolved]
  - Leukopenia [Recovered/Resolved]

NARRATIVE: CASE EVENT DATE: 20030602
